FAERS Safety Report 7788392-7 (Version None)
Quarter: 2011Q3

REPORT INFORMATION
  Report Type: 
  Country: None (occurrence: None)
  Receive Date: 20110928
  Receipt Date: 20110914
  Transmission Date: 20111222
  Serious: Yes (Other)
  Sender: FDA-Public Use
  Company Number: 2011AP002061

PATIENT
  Age: 50 Year
  Sex: Female

DRUGS (4)
  1. CALCIUM CARBONATE [Concomitant]
  2. TERBINAFINE HCL [Suspect]
     Indication: FUNGAL INFECTION
     Dates: start: 20110101, end: 20110601
  3. VITAMIN D [Concomitant]
  4. VOTAMINS NOS (VITAMINS NOS) [Concomitant]

REACTIONS (3)
  - THROMBOCYTOPENIA [None]
  - BONE MARROW FAILURE [None]
  - NEUTROPENIA [None]
